FAERS Safety Report 20142156 (Version 1)
Quarter: 2021Q4

REPORT INFORMATION
  Report Type: Spontaneous
  Country: DE (occurrence: DE)
  Receive Date: 20211202
  Receipt Date: 20211202
  Transmission Date: 20220303
  Serious: Yes (Other)
  Sender: FDA-Public Use
  Company Number: DE-TEVA-2021-DE-1953304

PATIENT
  Sex: Male

DRUGS (1)
  1. CARBIDOPA\LEVODOPA [Suspect]
     Active Substance: CARBIDOPA\LEVODOPA
     Indication: Parkinson^s disease
     Dosage: 2 DOSAGE FORM, QD2, ALREADY FOR YEARS, 2 TABLETS IN THE EVENING, 1DF CONTAINS 100 MG LEVODOPA AND
     Route: 048

REACTIONS (2)
  - Product supply issue [Unknown]
  - Parkinson^s disease [Unknown]
